FAERS Safety Report 7638001-2 (Version None)
Quarter: 2011Q3

REPORT INFORMATION
  Report Type: 
  Country: None (occurrence: None)
  Receive Date: 20110727
  Receipt Date: 20110722
  Transmission Date: 20111222
  Serious: Yes (Other)
  Sender: FDA-Public Use
  Company Number: US-AMGEN-USASP2011034549

PATIENT
  Age: 67 Year
  Sex: Male
  Weight: 93.424 kg

DRUGS (4)
  1. ALOXI [Concomitant]
     Route: 042
  2. NPLATE [Suspect]
     Indication: IDIOPATHIC THROMBOCYTOPENIC PURPURA
     Route: 058
     Dates: start: 20101206, end: 20110606
  3. ARANESP [Concomitant]
     Dosage: 200 MG, UNK
     Route: 058
  4. B12                                /00056201/ [Concomitant]
     Dosage: 1 MG, UNK
     Route: 058

REACTIONS (8)
  - ANAEMIA [None]
  - MYELODYSPLASTIC SYNDROME [None]
  - HAEMARTHROSIS [None]
  - ASTHENIA [None]
  - DYSPNOEA [None]
  - DRUG INEFFECTIVE [None]
  - THROMBOCYTOPENIA [None]
  - FATIGUE [None]
